FAERS Safety Report 7657095-1 (Version None)
Quarter: 2011Q3

REPORT INFORMATION
  Report Type: 
  Country: None (occurrence: None)
  Receive Date: 20110804
  Receipt Date: 20101022
  Transmission Date: 20111222
  Serious: No
  Sender: FDA-Public Use
  Company Number: US-GLAXOSMITHKLINE-A0888323A

PATIENT
  Age: 54 Year
  Sex: Female

DRUGS (7)
  1. VENTOLIN HFA [Suspect]
     Indication: BRONCHITIS
     Dates: start: 20080101
  2. CLARITIN [Concomitant]
  3. MUCINEX [Concomitant]
  4. ZANTAC [Concomitant]
  5. NASONEX [Concomitant]
  6. ADVAIR DISKUS 100/50 [Suspect]
     Indication: CHRONIC OBSTRUCTIVE PULMONARY DISEASE
     Dosage: 2MCG TWICE PER DAY
     Route: 055
     Dates: start: 20101021
  7. XANAX [Concomitant]

REACTIONS (2)
  - DRUG INEFFECTIVE [None]
  - NAUSEA [None]
